FAERS Safety Report 7983699-2 (Version None)
Quarter: 2011Q4

REPORT INFORMATION
  Report Type: 
  Country: None (occurrence: None)
  Receive Date: 20111215
  Receipt Date: 20111124
  Transmission Date: 20120403
  Serious: Yes (Life-Threatening, Other)
  Sender: FDA-Public Use
  Company Number: JP-ASTRAZENECA-2011SE63259

PATIENT
  Age: 16915 Day
  Sex: Male
  Weight: 74.2 kg

DRUGS (6)
  1. SEROQUEL [Suspect]
     Indication: DEPRESSION
     Route: 048
     Dates: start: 20101129, end: 20110113
  2. PAXIL [Suspect]
     Indication: DEPRESSION
     Route: 048
     Dates: start: 20101126
  3. ROHYPNOL [Concomitant]
     Route: 048
  4. ALLOPURINOL [Suspect]
     Indication: HYPERLIPIDAEMIA
     Route: 048
     Dates: start: 20070611
  5. DESYREL [Concomitant]
     Route: 048
  6. LIVALO [Suspect]
     Indication: HYPERLIPIDAEMIA
     Route: 048
     Dates: start: 20070611

REACTIONS (2)
  - OFF LABEL USE [None]
  - DIABETIC KETOACIDOSIS [None]
